FAERS Safety Report 11272517 (Version 1)
Quarter: 2015Q3

REPORT INFORMATION
  Report Type: Spontaneous
  Country: US (occurrence: US)
  Receive Date: 20150715
  Receipt Date: 20150715
  Transmission Date: 20151125
  Serious: No
  Sender: FDA-Public Use
  Company Number: PHEH2015US013565

PATIENT
  Age: 3 Year
  Sex: Male

DRUGS (1)
  1. TOBI [Suspect]
     Active Substance: TOBRAMYCIN
     Indication: UPPER RESPIRATORY TRACT INFECTION
     Dosage: 300 MG/5 ML, BID
     Route: 055
     Dates: start: 20150310

REACTIONS (1)
  - Off label use [Unknown]
